FAERS Safety Report 19939222 (Version 2)
Quarter: 2021Q4

REPORT INFORMATION
  Report Type: Spontaneous
  Country: PT (occurrence: PT)
  Receive Date: 20211011
  Receipt Date: 20211123
  Transmission Date: 20220303
  Serious: Yes (Death, Other)
  Sender: FDA-Public Use
  Company Number: PT-VIIV HEALTHCARE LIMITED-PT2021EME208473

PATIENT
  Age: 74 Year
  Sex: Female

DRUGS (1)
  1. DOLUTEGRAVIR SODIUM\LAMIVUDINE [Suspect]
     Active Substance: DOLUTEGRAVIR SODIUM\LAMIVUDINE
     Indication: Product used for unknown indication
     Dosage: UNK

REACTIONS (2)
  - Endometrial cancer recurrent [Fatal]
  - Disease progression [Fatal]
